FAERS Safety Report 6078072-0 (Version None)
Quarter: 2009Q1

REPORT INFORMATION
  Report Type: 
  Country: None (occurrence: None)
  Receive Date: 20090213
  Receipt Date: 20090205
  Transmission Date: 20090719
  Serious: Yes (Death)
  Sender: FDA-Public Use
  Company Number: JP-BAXTER-2009BH000667

PATIENT
  Age: 87 Year
  Sex: Male
  Weight: 52 kg

DRUGS (5)
  1. FEIBA VH IMMUNO [Suspect]
     Indication: HAEMOSTASIS
     Route: 042
     Dates: start: 20081226, end: 20081226
  2. NOVOSEVEN [Suspect]
     Indication: HAEMOSTASIS
     Route: 065
     Dates: start: 20081209, end: 20081223
  3. SOLU-MEDROL [Concomitant]
     Indication: FACTOR VIII INHIBITION
     Route: 042
     Dates: start: 20081210, end: 20081212
  4. ENDOXAN [Concomitant]
     Indication: FACTOR VIII INHIBITION
     Route: 042
     Dates: start: 20081221
  5. PREDONINE [Concomitant]
     Indication: FACTOR VIII INHIBITION
     Route: 042
     Dates: start: 20081213

REACTIONS (1)
  - HAEMORRHAGE [None]
